FAERS Safety Report 7747969-5 (Version None)
Quarter: 2011Q3

REPORT INFORMATION
  Report Type: 
  Country: None (occurrence: None)
  Receive Date: 20110909
  Receipt Date: 20110826
  Transmission Date: 20111222
  Serious: Yes (Death, Life-Threatening, Hospitalization, Disabling)
  Sender: FDA-Public Use
  Company Number: 2011HGS-002402

PATIENT
  Age: 64 Year
  Sex: Female
  Weight: 120 kg

DRUGS (28)
  1. BUMETANIDE (BUMETANIDE) (BUMETANIDE) [Concomitant]
  2. LOSARTAN (LOSARTAN) (LOSARTAN) [Concomitant]
  3. MULTIVITAMIN (MULTIVITAMIN AND MINERAL SUPPLEMENT) (VITAMIN NOS, MINER [Concomitant]
  4. POTASSIUM ER (POTASSIUM CHLORIDE (POTASSIUM CHLORIDE) [Concomitant]
  5. AMARYL [Concomitant]
  6. PYRIDIUM (PHENAZOPYRIDINE HYDROCHLORIDE) (PHENAZOPYRIDINE HYDROCHLORID [Concomitant]
  7. NEXIUM [Concomitant]
  8. GLYBURIDE [Concomitant]
  9. LEBATOLOL (LABETALOL HYDROCHLORIDE) (LABETALOL HYDROCHLORIDE) [Concomitant]
  10. ALPRAZOLAM [Concomitant]
  11. CIMETIDINE (CIMETIDINE) (CIMETIDINE) [Concomitant]
  12. CLINDAMYCIN [Concomitant]
  13. HYDROXYZINE [Concomitant]
  14. MAGNESIUM HYDROXIDE (MAGNESIUM HYDROXIDE) (MAGNESIUM HYDROXIDE) [Concomitant]
  15. DIOVAN (VALSARTAN) (DIOVAN VALSARTAN) [Concomitant]
  16. CLONIDINE [Concomitant]
  17. LACTOBACILLUS ACIDOPHILUS (LACTOBACILLUS ACIDOPHILUS) (LACTABACILLUS A [Concomitant]
  18. CALCIUM CARBONATE W/VITAMIN D (OYSTER SHEL CALCIUM WITH VITAMIN D) (CA [Concomitant]
  19. PREDNISONE [Concomitant]
  20. BENLYSTA [Suspect]
  21. ALBUTEROL (SALBUTAMOL) (SALBUTAMOL) [Concomitant]
  22. FLONASE (FLUTICASONE PROPIONATE) (FLUTICASONE PROPIONATE) [Concomitant]
  23. BENLYSTA [Suspect]
     Indication: SYSTEMIC LUPUS ERYTHEMATOSUS
     Dosage: 5 MG/K, 1 IN 14 D, INTRAVENOUS DRIP
     Route: 041
     Dates: start: 20110719, end: 20110719
  24. TYLENOL (PARACETAMOL) (PARACETAMOL) [Concomitant]
  25. COLCHICINE (COLCHICINE) (COLCHICINE) [Concomitant]
  26. DIFLUCAN (FLUCONAZOLE) (FLUCONAZOLE) [Concomitant]
  27. COUMADIN (WARFARIN SODUIM) (WARFARIN SODIUM) [Concomitant]
  28. OCEAN (SODIUM CHLORIDE) (SODIUM CHLORIDE) [Concomitant]

REACTIONS (16)
  - RENAL FAILURE ACUTE [None]
  - GLUCOSE TOLERANCE IMPAIRED [None]
  - PYREXIA [None]
  - PULSELESS ELECTRICAL ACTIVITY [None]
  - CHILLS [None]
  - RESPIRATORY FAILURE [None]
  - EJECTION FRACTION DECREASED [None]
  - LOCAL SWELLING [None]
  - NAUSEA [None]
  - DRUG HYPERSENSITIVITY [None]
  - DYSPNOEA [None]
  - SKIN DISCOLOURATION [None]
  - HYPOXIC-ISCHAEMIC ENCEPHALOPATHY [None]
  - RETCHING [None]
  - ANGIOEDEMA [None]
  - CARDIAC ARREST [None]
